FAERS Safety Report 7250500-4 (Version None)
Quarter: 2011Q1

REPORT INFORMATION
  Report Type: 
  Country: None (occurrence: None)
  Receive Date: 20110119
  Receipt Date: 20110111
  Transmission Date: 20110831
  Serious: Yes (Hospitalization)
  Sender: FDA-Public Use
  Company Number: 111493

PATIENT
  Age: 76 Year
  Sex: Male

DRUGS (1)
  1. CEFTRIAXONE [Suspect]
     Indication: PNEUMONIA ASPIRATION
     Dosage: 2G/DAY/IV
     Route: 042

REACTIONS (6)
  - FEELING ABNORMAL [None]
  - DISORIENTATION [None]
  - ALTERED STATE OF CONSCIOUSNESS [None]
  - SPEECH DISORDER [None]
  - CHOREOATHETOSIS [None]
  - ABNORMAL BEHAVIOUR [None]
